APPROVED DRUG PRODUCT: ARALEN PHOSPHATE W/ PRIMAQUINE PHOSPHATE
Active Ingredient: CHLOROQUINE PHOSPHATE; PRIMAQUINE PHOSPHATE
Strength: EQ 300MG BASE;EQ 45MG BASE
Dosage Form/Route: TABLET;ORAL
Application: N014860 | Product #002
Applicant: SANOFI AVENTIS US LLC
Approved: Approved Prior to Jan 1, 1982 | RLD: No | RS: No | Type: DISCN